FAERS Safety Report 6361993-9 (Version None)
Quarter: 2009Q3

REPORT INFORMATION
  Report Type: 
  Country: None (occurrence: None)
  Receive Date: 20090916
  Receipt Date: 20090916
  Transmission Date: 20100115
  Serious: Yes (Other)
  Sender: FDA-Public Use
  Company Number: None

PATIENT
  Sex: Male
  Weight: 90.7194 kg

DRUGS (1)
  1. DEXTROAMPHETAMINE [Suspect]
     Indication: FATIGUE
     Dosage: 20MG 1 BID PO
     Route: 048
     Dates: start: 20090818, end: 20090914

REACTIONS (2)
  - PRODUCT QUALITY ISSUE [None]
  - VISION BLURRED [None]
